FAERS Safety Report 10619217 (Version 2)
Quarter: 2014Q4

REPORT INFORMATION
  Report Type: Spontaneous
  Country: FR (occurrence: None)
  Receive Date: 20141126
  Receipt Date: 20141224
  Transmission Date: 20150529
  Serious: Yes (Other)
  Sender: FDA-Public Use
  Company Number: 2014-20809

PATIENT
  Sex: Male

DRUGS (1)
  1. EYLEA [Suspect]
     Active Substance: AFLIBERCEPT
     Indication: AGE-RELATED MACULAR DEGENERATION
     Dosage: TOTAL OF ONE INJECTION OF EYLEA

REACTIONS (4)
  - Retinal pigment epithelial tear [None]
  - Dry age-related macular degeneration [None]
  - Chorioretinal atrophy [None]
  - Visual acuity reduced [None]
